FAERS Safety Report 18260490 (Version 1)
Quarter: 2020Q3

REPORT INFORMATION
  Report Type: Spontaneous
  Country: CA (occurrence: CA)
  Receive Date: 20200914
  Receipt Date: 20200914
  Transmission Date: 20201103
  Serious: Yes (Other)
  Sender: FDA-Public Use
  Company Number: CA-TEVA-2020-CA-1827005

PATIENT
  Age: 65 Year
  Sex: Female

DRUGS (3)
  1. METHOTREXATE. [Suspect]
     Active Substance: METHOTREXATE
     Indication: PSORIATIC ARTHROPATHY
     Route: 058
  2. PREDNISONE. [Concomitant]
     Active Substance: PREDNISONE
     Indication: PSORIASIS
     Dosage: 10 MILLIGRAM DAILY;
     Route: 061
  3. ELIQUIS [Concomitant]
     Active Substance: APIXABAN
     Indication: THROMBOSIS
     Route: 065

REACTIONS (16)
  - Acute respiratory distress syndrome [Unknown]
  - Loss of personal independence in daily activities [Unknown]
  - Neck pain [Unknown]
  - Drug ineffective [Unknown]
  - Fatigue [Unknown]
  - Spinal pain [Unknown]
  - Injection site ulcer [Unknown]
  - Malaise [Unknown]
  - Arthralgia [Unknown]
  - Back pain [Unknown]
  - Influenza [Unknown]
  - Intervertebral disc degeneration [Unknown]
  - Peripheral ischaemia [Unknown]
  - Wheelchair user [Unknown]
  - Gait disturbance [Unknown]
  - Dyspnoea [Unknown]
